FAERS Safety Report 4583176-5 (Version None)
Quarter: 2005Q1

REPORT INFORMATION
  Report Type: 
  Country: None (occurrence: None)
  Receive Date: 20050125
  Receipt Date: 20041004
  Transmission Date: 20050727
  Serious: No
  Sender: FDA-Public Use
  Company Number: US_011075707

PATIENT
  Age: 73 Year
  Sex: Female
  Weight: 63 kg

DRUGS (8)
  1. EVISTA [Suspect]
     Indication: OSTEOPOROSIS
     Dosage: 60 MG/L DAY
     Dates: start: 19980101
  2. FORTEO [Suspect]
  3. LANOXIN [Concomitant]
  4. SYNTHROID [Concomitant]
  5. ATENOLOL [Concomitant]
  6. CALCIUM GLUCONATE [Concomitant]
  7. ACTONEL [Concomitant]
  8. MULTI-VITAMIN [Concomitant]

REACTIONS (3)
  - ALOPECIA [None]
  - BONE DENSITY DECREASED [None]
  - BONE PAIN [None]
